FAERS Safety Report 16755143 (Version 2)
Quarter: 2019Q4

REPORT INFORMATION
  Report Type: Spontaneous
  Country: PT (occurrence: PT)
  Receive Date: 20190829
  Receipt Date: 20191004
  Transmission Date: 20200122
  Serious: Yes (Other)
  Sender: FDA-Public Use
  Company Number: PT-GLAXOSMITHKLINE-PT2019EME156132

PATIENT

DRUGS (3)
  1. ELONTRIL [Suspect]
     Active Substance: BUPROPION HYDROCHLORIDE
     Indication: DEPRESSION
     Dosage: UNK, 150MG
     Dates: start: 20180913, end: 20190617
  2. ELONTRIL [Suspect]
     Active Substance: BUPROPION HYDROCHLORIDE
     Dosage: 300 MG, QD
     Route: 048
     Dates: start: 20190617
  3. ELONTRIL [Suspect]
     Active Substance: BUPROPION HYDROCHLORIDE
     Dosage: UNK, 150 MG
     Route: 048
     Dates: start: 2019, end: 20190616

REACTIONS (1)
  - Visual acuity reduced [Recovered/Resolved]
